FAERS Safety Report 20819292 (Version 2)
Quarter: 2022Q2

REPORT INFORMATION
  Report Type: Spontaneous
  Country: US (occurrence: None)
  Receive Date: 20220512
  Receipt Date: 20220620
  Transmission Date: 20220721
  Serious: Yes (Other)
  Sender: FDA-Public Use
  Company Number: US-ROCHE-2926089

PATIENT
  Sex: Female

DRUGS (2)
  1. PULMOZYME [Suspect]
     Active Substance: DORNASE ALFA
     Indication: Cystic fibrosis
     Route: 055
     Dates: start: 20130601
  2. PULMOZYME [Suspect]
     Active Substance: DORNASE ALFA
     Route: 065
     Dates: start: 201307

REACTIONS (13)
  - Dizziness [Recovering/Resolving]
  - Depression [Not Recovered/Not Resolved]
  - Sinus polyp [Unknown]
  - Rhinorrhoea [Not Recovered/Not Resolved]
  - Insomnia [Not Recovered/Not Resolved]
  - Pulmonary congestion [Not Recovered/Not Resolved]
  - Nasopharyngitis [Not Recovered/Not Resolved]
  - Disability [Unknown]
  - Memory impairment [Unknown]
  - Dyspnoea [Unknown]
  - Arthritis [Not Recovered/Not Resolved]
  - Fibromyalgia [Unknown]
  - Bradykinesia [Not Recovered/Not Resolved]
